FAERS Safety Report 18264649 (Version 2)
Quarter: 2020Q3

REPORT INFORMATION
  Report Type: Spontaneous
  Country: US (occurrence: US)
  Receive Date: 20200914
  Receipt Date: 20200921
  Transmission Date: 20201103
  Serious: Yes (Other)
  Sender: FDA-Public Use
  Company Number: US-ELI_LILLY_AND_COMPANY-US202009004824

PATIENT

DRUGS (1)
  1. TALTZ [Suspect]
     Active Substance: IXEKIZUMAB
     Indication: PRODUCT USED FOR UNKNOWN INDICATION
     Dosage: 80 MG, UNKNOWN
     Route: 065

REACTIONS (7)
  - Seizure [Unknown]
  - Disorientation [Unknown]
  - Malaise [Unknown]
  - Hypotension [Unknown]
  - Confusional state [Unknown]
  - Presyncope [Unknown]
  - Fatigue [Unknown]

NARRATIVE: CASE EVENT DATE: 20200909
